FAERS Safety Report 19189971 (Version 1)
Quarter: 2021Q2

REPORT INFORMATION
  Report Type: Report from Study
  Country: CA (occurrence: CA)
  Receive Date: 20210428
  Receipt Date: 20210428
  Transmission Date: 20210717
  Serious: Yes (Other)
  Sender: FDA-Public Use
  Company Number: CA-ASPEN-GLO2021CA002432

PATIENT

DRUGS (3)
  1. RENFLEXIS [Suspect]
     Active Substance: INFLIXIMAB-ABDA
     Indication: CROHN^S DISEASE
     Dosage: 600 MG 1 EVERY 8 WEEKS
     Route: 042
  2. IMURAN [Suspect]
     Active Substance: AZATHIOPRINE
     Dosage: 2 UNK
     Route: 065
  3. IMURAN [Suspect]
     Active Substance: AZATHIOPRINE
     Indication: PRODUCT USED FOR UNKNOWN INDICATION
     Dosage: 3 DOSAGE FORM, QD
     Route: 065

REACTIONS (7)
  - Immunodeficiency [Unknown]
  - Skin cancer [Unknown]
  - Cyst [Unknown]
  - Pain [Unknown]
  - Ovarian cyst [Unknown]
  - Neurodermatitis [Unknown]
  - Skin mass [Unknown]
